FAERS Safety Report 24139327 (Version 1)
Quarter: 2024Q3

REPORT INFORMATION
  Report Type: Spontaneous
  Country: US (occurrence: US)
  Receive Date: 20240726
  Receipt Date: 20240726
  Transmission Date: 20241016
  Serious: No
  Sender: ROCHE
  Company Number: US-ROCHE-10000034914

PATIENT
  Sex: Female

DRUGS (1)
  1. ALECENSA [Suspect]
     Active Substance: ALECTINIB HYDROCHLORIDE
     Indication: Thyroid cancer
     Route: 048
     Dates: start: 202406

REACTIONS (4)
  - Neuropathy peripheral [Unknown]
  - Nausea [Unknown]
  - Vomiting [Unknown]
  - Off label use [Unknown]
